FAERS Safety Report 4348681-5 (Version None)
Quarter: 2004Q2

REPORT INFORMATION
  Report Type: 
  Country: None (occurrence: None)
  Receive Date: 20040423
  Receipt Date: 20040414
  Transmission Date: 20050107
  Serious: Yes (Hospitalization)
  Sender: FDA-Public Use
  Company Number: DE-JNJFOC-20040403068

PATIENT
  Age: 30 Year
  Sex: Male

DRUGS (1)
  1. DURAGESIC [Suspect]
     Indication: PAIN
     Dosage: SEE IMAGE
     Route: 062

REACTIONS (5)
  - BRONCHOPNEUMONIA [None]
  - DRUG INEFFECTIVE [None]
  - INJURY [None]
  - MEDICATION ERROR [None]
  - PERICARDIAL EFFUSION [None]
